FAERS Safety Report 17886739 (Version 2)
Quarter: 2020Q4

REPORT INFORMATION
  Report Type: Report from Study
  Country: DE (occurrence: DE)
  Receive Date: 20200611
  Receipt Date: 20201026
  Transmission Date: 20210113
  Serious: Yes (Other)
  Sender: FDA-Public Use
  Company Number: DE-AMGEN-DEUNI2020068314

PATIENT
  Sex: Female

DRUGS (3)
  1. ERENUMAB [Suspect]
     Active Substance: ERENUMAB
     Indication: MIGRAINE
     Dosage: 70 MILLIGRAM
     Route: 065
     Dates: start: 20200309, end: 20200406
  2. GYNOKADIN [ESTRADIOL] [Concomitant]
     Active Substance: ESTRADIOL
     Indication: MENOPAUSE
     Dosage: 0.6 MILLIGRAM, QD
     Route: 050
     Dates: start: 201001
  3. FAMENITA [Concomitant]
     Active Substance: PROGESTERONE
     Indication: MENOPAUSE
     Dosage: 100 MILLIGRAM, QD
     Route: 050
     Dates: start: 201001

REACTIONS (5)
  - Dyschezia [Recovered/Resolved]
  - Constipation [Recovered/Resolved]
  - Gastrointestinal motility disorder [Recovered/Resolved]
  - Abdominal pain upper [Recovered/Resolved]
  - Intestinal obstruction [Recovered/Resolved]

NARRATIVE: CASE EVENT DATE: 20200316
